FAERS Safety Report 6396094-7 (Version None)
Quarter: 2009Q4

REPORT INFORMATION
  Report Type: 
  Country: None (occurrence: None)
  Receive Date: 20091009
  Receipt Date: 20091002
  Transmission Date: 20100525
  Serious: Yes (Hospitalization)
  Sender: FDA-Public Use
  Company Number: US-GENENTECH-291691

PATIENT
  Sex: Female

DRUGS (17)
  1. BLINDED BEVACIZUMAB [Suspect]
     Indication: BREAST CANCER
     Dosage: 10 MG/KG, Q14D FOR CYCLES 1-4
     Route: 042
     Dates: start: 20090615
  2. CYCLOPHOSPHAMIDE [Suspect]
     Indication: BREAST CANCER
     Dosage: 10 MG/KG, Q14D FOR CYCLES 1-4
     Route: 042
     Dates: start: 20090615
  3. DOXORUBICIN HCL [Suspect]
     Indication: BREAST CANCER
     Dosage: 10 MG/KG, Q14D FOR CYCLES 1-4
     Route: 042
     Dates: start: 20090615
  4. BLINDED PACLITAXEL [Suspect]
     Indication: BREAST CANCER
     Dosage: 10 MG/KG, Q14D FOR CYCLES 1-4
     Route: 042
     Dates: start: 20090615
  5. BLINDED PLACEBO [Suspect]
     Indication: BREAST CANCER
     Dosage: 10 MG/KG, Q14D FOR CYCLES 1-4
     Route: 042
     Dates: start: 20090615
  6. BLINDED BEVACIZUMAB [Suspect]
     Dosage: 15 MG/KG, Q21D FOR CYCLES 5-8
     Route: 042
  7. CYCLOPHOSPHAMIDE [Suspect]
     Dosage: 15 MG/KG, Q21D FOR CYCLES 5-8
     Route: 042
  8. DOXORUBICIN HCL [Suspect]
     Dosage: 15 MG/KG, Q21D FOR CYCLES 5-8
     Route: 042
  9. BLINDED PACLITAXEL [Suspect]
     Dosage: 15 MG/KG, Q21D FOR CYCLES 5-8
     Route: 042
  10. BLINDED PLACEBO [Suspect]
     Dosage: 15 MG/KG, Q21D FOR CYCLES 5-8
     Route: 042
  11. DOXORUBICIN HCL [Suspect]
     Indication: BREAST CANCER
     Dosage: 60 MG/M2, Q14D FOR CYCLES 1-4
     Dates: start: 20090615
  12. CYCLOPHOSPHAMIDE [Suspect]
     Indication: BREAST CANCER
     Dosage: 600 MG/M2 OVER 20-30 MIN, Q14D FOR CYCLES 1-4
     Route: 042
     Dates: start: 20090615
  13. NEUPOGEN [Suspect]
     Indication: BREAST CANCER
     Dosage: 5 A?G/KG, STARTING ON DAY 2-11 / Q14D FOR CYCLES 1-4
     Route: 058
     Dates: start: 20090615
  14. PEGFILGRASTIM [Suspect]
     Indication: BREAST CANCER
     Dosage: 6 MG, STARTING ON DAY 2 / Q14D FOR CYCLES 1-4
     Route: 058
     Dates: start: 20090615
  15. PACLITAXEL [Suspect]
     Indication: BREAST CANCER
     Dosage: 80 MG/M2, ON DAYS 1,8,15 / Q21D FOR CYCLES 5-8
     Route: 042
  16. LEVOTHYROXINE [Concomitant]
     Indication: HYPOTHYROIDISM
  17. HEPARIN [Concomitant]
     Indication: THROMBOSIS PROPHYLAXIS
     Dosage: 5000 U, Q12H
     Route: 058

REACTIONS (1)
  - PYREXIA [None]
